FAERS Safety Report 5314093-0 (Version None)
Quarter: 2007Q2

REPORT INFORMATION
  Report Type: 
  Country: None (occurrence: None)
  Receive Date: 20070501
  Receipt Date: 20070424
  Transmission Date: 20071010
  Serious: Yes (Death, Hospitalization)
  Sender: FDA-Public Use
  Company Number: ES-PFIZER INC-2007032336

PATIENT
  Age: 77 Year
  Sex: Female

DRUGS (13)
  1. FELDENE [Suspect]
     Route: 048
     Dates: start: 20060101
  2. CEFUROXIME [Suspect]
     Route: 048
     Dates: start: 20070101
  3. OMEPRAZOLE [Suspect]
     Dates: start: 20070101
  4. FUROSEMIDE [Suspect]
     Route: 048
     Dates: start: 20060101
  5. NSAID'S [Suspect]
     Dates: start: 20060101
  6. VERAPAMIL [Suspect]
     Route: 048
     Dates: start: 20060101
  7. ADIRO [Suspect]
     Route: 048
     Dates: start: 20060101
  8. FOSAMAX [Suspect]
     Route: 048
  9. DEANXIT [Suspect]
     Dosage: TEXT:10/0.5 MG
     Route: 048
  10. SPIRIVA [Concomitant]
  11. PULMICORT [Concomitant]
  12. ACETYLCYSTEINE [Concomitant]
  13. IRON [Concomitant]
     Route: 048

REACTIONS (1)
  - TOXIC EPIDERMAL NECROLYSIS [None]
